FAERS Safety Report 21555728 (Version 1)
Quarter: 2022Q4

REPORT INFORMATION
  Report Type: Spontaneous
  Country: IT (occurrence: None)
  Receive Date: 20221104
  Receipt Date: 20221104
  Transmission Date: 20230113
  Serious: Yes (Hospitalization)
  Sender: FDA-Public Use
  Company Number: 2022A358738

PATIENT
  Age: 81 Year
  Sex: Male
  Weight: 60 kg

DRUGS (13)
  1. DAPAGLIFLOZIN [Suspect]
     Active Substance: DAPAGLIFLOZIN
     Indication: Cardiac failure
     Dosage: IN HOSPITALIZATION FROM 14/10/2022 TO 16/10/2022 ADMINISTERS FORXIGA* 28CPR RIV 10MG: DAPAGLIFLOZ...
     Route: 048
     Dates: start: 20221014, end: 20221016
  2. DAPAGLIFLOZIN [Suspect]
     Active Substance: DAPAGLIFLOZIN
     Indication: Type 2 diabetes mellitus
     Dosage: IN HOSPITALIZATION FROM 14/10/2022 TO 16/10/2022 ADMINISTERS FORXIGA* 28CPR RIV 10MG: DAPAGLIFLOZ...
     Route: 048
     Dates: start: 20221014, end: 20221016
  3. LUVION [Concomitant]
     Indication: Hypertensive heart disease
     Dosage: IT IS DECLARED IN HOSPITALIZATION FROM 08/10/2022 LUVION 40CPR 50MG: CANRENONE (PA); SCHEME DOSAG...
     Route: 048
     Dates: start: 20221008
  4. LASIX [Concomitant]
     Active Substance: FUROSEMIDE
     Indication: Hypertensive heart disease
     Dosage: IT DECLARES ITSELF IN HOSPITALIZATION FROM 08/10/2022 LASIX 30CPR 25MG: FUROSEMIDE (PA); SCHEME D...
     Route: 048
     Dates: start: 20221008
  5. BETAMETHASONE SODIUM PHOSPHATE [Concomitant]
     Active Substance: BETAMETHASONE SODIUM PHOSPHATE
     Indication: Osteoarthritis
     Dosage: IN HOSPITALIZATION FROM 08/10/2022 TO 15/10/2022 BENTELAN 10CPR EFF 1MG: BETAMETHASONE (PA): DOSI...
     Route: 048
     Dates: start: 20221008, end: 20221015
  6. METFORMIN HYDROCHLORIDE [Concomitant]
     Active Substance: METFORMIN HYDROCHLORIDE
     Indication: Gastrooesophageal reflux disease
     Dosage: THE PATIENT DECLARES THERAPEUTIC CONTINUITY SINCE 2019 WITH METFORAL 30CPR RIV 850MG: METFORMIN C...
     Route: 048
     Dates: start: 2019
  7. ENOXAPARIN SODIUM [Concomitant]
     Active Substance: ENOXAPARIN SODIUM
     Indication: Deep vein thrombosis
     Dosage: IT DECLARES ITSELF IN HOSPITALIZATION FROM 08/10/2022 TO 10/13/2022 CLEXANE 6SIR 4000 IU 0,4 ML: ...
     Route: 048
     Dates: start: 20221008, end: 20221013
  8. ASPIRIN [Concomitant]
     Active Substance: ASPIRIN
     Indication: Hypertension
     Dosage: IT IS DECLARED IN HOSPITALIZATION FROM 08/10/2022 CARDIOASPIRIN 30CPR GAST 100MG: ACID ACETYL SAL...
     Route: 048
     Dates: start: 20221008
  9. OMEGA 3 [Concomitant]
     Active Substance: CAPSAICIN
     Indication: Type 2 diabetes mellitus
     Dosage: IT DECLARES ITSELF IN HOSPITALIZATION FROM 08/10/2022 TO 17/10/2022 OMEGA-3 DOC 20CPS SOFT 1G 84%...
     Route: 048
     Dates: start: 20221008
  10. DOPAMINA [Concomitant]
     Indication: Hypovolaemic shock
     Dosage: IN HOSPITALIZATION FROM 08/10/2022 TO 12/10/2022 DOPAMINE PFIZER 10 F 200 MG/5ML ; ATC: C01CA04; ...
     Route: 042
     Dates: start: 20221008, end: 20221012
  11. DOPAMINA [Concomitant]
     Indication: Cardiogenic shock
     Dosage: IN HOSPITALIZATION FROM 08/10/2022 TO 12/10/2022 DOPAMINE PFIZER 10 F 200 MG/5ML ; ATC: C01CA04; ...
     Route: 042
     Dates: start: 20221008, end: 20221012
  12. PANTOPRAZOLE SODIUM [Concomitant]
     Active Substance: PANTOPRAZOLE SODIUM
     Indication: Infertility female
     Dosage: IT IS DECLARED IN HOSPITALIZATION FROM 08/10/2022 PANTOPRAZOLE EG* 14CPR 20MG: PANTOPRAZOLE (PA):...
     Route: 048
     Dates: start: 20221008
  13. ATORVASTATIN [Concomitant]
     Active Substance: ATORVASTATIN
     Indication: Dyslipidaemia
     Dosage: IT IS DECLARED IN HOSPITALIZATION FROM 08/10/2022 ATORVASTATIN MY* 30CPR 10MG: ATORVASTATIN (PA) ...
     Route: 048
     Dates: start: 20221008

REACTIONS (2)
  - Nausea [Recovered/Resolved]
  - Vomiting [Recovered/Resolved]

NARRATIVE: CASE EVENT DATE: 20221015
